FAERS Safety Report 16960661 (Version 4)
Quarter: 2019Q4

REPORT INFORMATION
  Report Type: Spontaneous
  Country: BR (occurrence: BR)
  Receive Date: 20191025
  Receipt Date: 20191105
  Transmission Date: 20200122
  Serious: Yes (Death, Other)
  Sender: FDA-Public Use
  Company Number: BR-JAZZ-2019-BR-014563

PATIENT
  Age: 12 Year
  Sex: Female
  Weight: 52 kg

DRUGS (10)
  1. CYCLOSPORINE. [Concomitant]
     Active Substance: CYCLOSPORINE
     Indication: PROPHYLAXIS
     Dosage: UNK
     Route: 042
     Dates: start: 20190918, end: 20191019
  2. MICAFUNGIN. [Concomitant]
     Active Substance: MICAFUNGIN SODIUM
     Indication: EVIDENCE BASED TREATMENT
     Dosage: UNK
     Route: 042
     Dates: start: 20191012, end: 20191019
  3. MEROPENEM. [Concomitant]
     Active Substance: MEROPENEM
     Indication: EVIDENCE BASED TREATMENT
     Dosage: UNK
     Route: 042
     Dates: start: 20190927, end: 20191019
  4. AMIKACIN. [Concomitant]
     Active Substance: AMIKACIN
     Indication: EVIDENCE BASED TREATMENT
     Dosage: UNK
     Route: 042
     Dates: start: 20190930, end: 20191019
  5. VANCOMYCIN [Concomitant]
     Active Substance: VANCOMYCIN
     Indication: EVIDENCE BASED TREATMENT
     Dosage: UNK
     Route: 042
     Dates: start: 20190928, end: 20191019
  6. AMPHOTERICIN B LIPID COMPLEX [Concomitant]
     Active Substance: AMPHOTERICIN B
     Indication: EVIDENCE BASED TREATMENT
     Dosage: UNK
     Route: 042
     Dates: start: 20191006, end: 20191019
  7. METHYLPREDNISOLONE. [Concomitant]
     Active Substance: METHYLPREDNISOLONE
     Indication: EVIDENCE BASED TREATMENT
     Dosage: UNK
     Route: 042
     Dates: start: 20191015, end: 20191019
  8. OMEPRAZOLE. [Concomitant]
     Active Substance: OMEPRAZOLE
     Indication: EVIDENCE BASED TREATMENT
     Dosage: UNK
     Route: 042
     Dates: start: 20190912, end: 20191019
  9. URSODEOXYCHOLIC ACID [Concomitant]
     Active Substance: URSODIOL
     Indication: PROPHYLAXIS
     Dosage: UNK
     Dates: start: 20190912, end: 20191019
  10. DEFITELIO [Suspect]
     Active Substance: DEFIBROTIDE SODIUM
     Indication: VENOOCCLUSIVE LIVER DISEASE
     Dosage: 325 MG, QID
     Route: 042
     Dates: start: 20191015, end: 20191018

REACTIONS (5)
  - Intentional product use issue [Unknown]
  - Autonomic nervous system imbalance [Not Recovered/Not Resolved]
  - Shock [Fatal]
  - Multiple organ dysfunction syndrome [Fatal]
  - Central nervous system haemorrhage [Fatal]

NARRATIVE: CASE EVENT DATE: 20191015
